FAERS Safety Report 5033326-1 (Version None)
Quarter: 2006Q2

REPORT INFORMATION
  Report Type: 
  Country: None (occurrence: None)
  Receive Date: 20060620
  Receipt Date: 20060613
  Transmission Date: 20061013
  Serious: Yes (Life-Threatening, Hospitalization, Other)
  Sender: FDA-Public Use
  Company Number: AT200605005589

PATIENT
  Age: 18 Year
  Sex: Female
  Weight: 29.4 kg

DRUGS (13)
  1. ZYPREXA [Suspect]
     Indication: ANOREXIA NERVOSA
     Dosage: SEE IMAGE
     Route: 048
     Dates: start: 20060218, end: 20060222
  2. ZYPREXA [Suspect]
     Indication: ANOREXIA NERVOSA
     Dosage: SEE IMAGE
     Route: 048
     Dates: start: 20060223, end: 20060227
  3. ZYPREXA [Suspect]
     Indication: ANOREXIA NERVOSA
     Dosage: SEE IMAGE
     Route: 048
     Dates: start: 20060228, end: 20060302
  4. ZYPREXA [Suspect]
     Indication: ANOREXIA NERVOSA
     Dosage: SEE IMAGE
     Route: 048
     Dates: start: 20060321, end: 20060327
  5. FLUCTINE /SCH/(FLUOXETINE HYDROCHLORIDE) [Concomitant]
  6. MIRTAZAPINE [Concomitant]
  7. LORAZEPAM [Concomitant]
  8. MAXI-KALZ (CALCIUM CITRATE) [Concomitant]
  9. NEXIUM /UNK/ (ESOMEPRAZOLE) [Concomitant]
  10. LACTULOSE [Concomitant]
  11. SANOSTOL (ASCORBIC ACID, COLECALCIFEROL, RETINOL, THIAMINE) [Concomitant]
  12. CHLORALATE (CHLORAL HYDRATE) [Concomitant]
  13. TRIGLYCERIDES (TRIGLYCERIDES) [Concomitant]

REACTIONS (6)
  - ALANINE AMINOTRANSFERASE INCREASED [None]
  - ASPARTATE AMINOTRANSFERASE INCREASED [None]
  - HEART RATE DECREASED [None]
  - LEUKOPENIA [None]
  - STAPHYLOCOCCAL SEPSIS [None]
  - URINARY TRACT INFECTION PSEUDOMONAL [None]
